FAERS Safety Report 11940849 (Version 2)
Quarter: 2016Q1

REPORT INFORMATION
  Report Type: Spontaneous
  Country: CO (occurrence: CO)
  Receive Date: 20160122
  Receipt Date: 20160225
  Transmission Date: 20160526
  Serious: Yes (Death)
  Sender: FDA-Public Use
  Company Number: CO-NOVOPROD-477168

PATIENT
  Age: 13 Year
  Sex: Female

DRUGS (2)
  1. NOVOSEVEN RT [Suspect]
     Active Substance: COAGULATION FACTOR VIIA RECOMBINANT HUMAN
     Indication: VAGINAL HAEMORRHAGE
     Dosage: 5 MG EVERY 3 TO 4 HOURS
     Route: 065
     Dates: start: 20160105, end: 20160106
  2. NOVOSEVEN RT [Suspect]
     Active Substance: COAGULATION FACTOR VIIA RECOMBINANT HUMAN
     Indication: CONGENITAL THROMBOCYTE DISORDER

REACTIONS (2)
  - Vaginal haemorrhage [Fatal]
  - Condition aggravated [Fatal]

NARRATIVE: CASE EVENT DATE: 20160105
